FAERS Safety Report 4700708-4 (Version None)
Quarter: 2005Q2

REPORT INFORMATION
  Report Type: 
  Country: None (occurrence: None)
  Receive Date: 20050627
  Receipt Date: 20050610
  Transmission Date: 20051028
  Serious: Yes (Hospitalization)
  Sender: FDA-Public Use
  Company Number: 215504

PATIENT
  Age: 47 Year
  Sex: Female
  Weight: 58 kg

DRUGS (5)
  1. AVASTIN [Suspect]
     Indication: COLON CANCER
     Dosage: 285 MG, Q2W, INTRAVENOUS
     Route: 042
     Dates: start: 20050324
  2. OXALIPLATIN (OXALIPLATIN) [Suspect]
     Indication: COLON CANCER
     Dosage: 140 MG, INTRAVENOUS
     Route: 042
     Dates: start: 20050324
  3. FLUOROURACIL [Suspect]
     Indication: COLORECTAL CANCER
     Dosage: 3400 MG, Q2W, INTRAVNEOUS
     Route: 042
     Dates: start: 20050323
  4. ACETAMINOPHEN [Concomitant]
  5. OEMPRAZOL (OMEPRAZOLE) [Concomitant]

REACTIONS (1)
  - CHEST PAIN [None]
